FAERS Safety Report 16296296 (Version 1)
Quarter: 2019Q2

REPORT INFORMATION
  Report Type: Spontaneous
  Country: US (occurrence: US)
  Receive Date: 20190510
  Receipt Date: 20190510
  Transmission Date: 20190711
  Serious: No
  Sender: FDA-Public Use
  Company Number: US-PFIZER INC-2019195404

PATIENT
  Age: 52 Year
  Sex: Female
  Weight: 63.5 kg

DRUGS (17)
  1. CABERGOLINE. [Suspect]
     Active Substance: CABERGOLINE
     Indication: BRAIN TUMOUR OPERATION
     Dosage: 0.25 MG, UNK (1/2 TABLET EVERY 2 WEEKS)
     Route: 048
     Dates: start: 20100422
  2. HYDROCORTISONE. [Suspect]
     Active Substance: HYDROCORTISONE
     Indication: HYPOPITUITARISM
     Dosage: 20 MG, DAILY (3 TABLETS IN THE MORNING, 1 TABLET IN AFTERNOON DAILY)
     Route: 048
     Dates: start: 20100422
  3. DESMOPRESSIN ACETATE. [Suspect]
     Active Substance: DESMOPRESSIN ACETATE
     Indication: DIABETES INSIPIDUS
     Dosage: UNK, AS NEEDED (1.5 TABLETS DAILY, WITH ADDITIONAL HALF TABLET TAKEN AS NEEDED)
     Route: 048
     Dates: start: 20100422
  4. DESMOPRESSIN ACETATE. [Suspect]
     Active Substance: DESMOPRESSIN ACETATE
     Indication: HYPOTHALAMO-PITUITARY DISORDER
  5. FLUOXETINE [Suspect]
     Active Substance: FLUOXETINE HYDROCHLORIDE
     Indication: ANXIETY
     Dosage: 20 MG, 1X/DAY
     Route: 048
     Dates: start: 20100422
  6. VITAMIN D [ERGOCALCIFEROL] [Suspect]
     Active Substance: ERGOCALCIFEROL
     Indication: BRAIN TUMOUR OPERATION
     Dosage: 1 GEL CAPSULE, DAILY (25MCG/1000IU GEL CAPSULE)
     Route: 048
     Dates: start: 20100422
  7. LEVOTHYROXINE SODIUM. [Suspect]
     Active Substance: LEVOTHYROXINE SODIUM
     Indication: HYPOTHYROIDISM
     Dosage: 137 UG, 1X/DAY
     Route: 048
     Dates: start: 20100422
  8. LEVOTHYROXINE SODIUM. [Suspect]
     Active Substance: LEVOTHYROXINE SODIUM
     Indication: BRAIN TUMOUR OPERATION
  9. DEXEDRINE [Suspect]
     Active Substance: DEXTROAMPHETAMINE SULFATE
     Indication: HYPOTHALAMO-PITUITARY DISORDER
  10. VITAMIN D [ERGOCALCIFEROL] [Suspect]
     Active Substance: ERGOCALCIFEROL
     Indication: HYPOTHALAMO-PITUITARY DISORDER
  11. LEVOTHYROXINE SODIUM. [Suspect]
     Active Substance: LEVOTHYROXINE SODIUM
     Indication: HYPOTHALAMO-PITUITARY DISORDER
  12. TUMS [Suspect]
     Active Substance: CALCIUM CARBONATE
     Indication: BRAIN TUMOUR OPERATION
     Dosage: 1500 MG, DAILY (2 CHEWED DAILY)
     Route: 048
     Dates: start: 20100422
  13. CABERGOLINE. [Suspect]
     Active Substance: CABERGOLINE
     Indication: HYPOTHALAMO-PITUITARY DISORDER
  14. DESMOPRESSIN ACETATE. [Suspect]
     Active Substance: DESMOPRESSIN ACETATE
     Indication: BRAIN TUMOUR OPERATION
  15. DEXEDRINE [Suspect]
     Active Substance: DEXTROAMPHETAMINE SULFATE
     Indication: BRAIN TUMOUR OPERATION
     Dosage: 15 MG, DAILY
     Route: 048
     Dates: start: 20100422
  16. MAGNESIUM OXIDE. [Suspect]
     Active Substance: MAGNESIUM OXIDE
     Indication: CARDIAC DISORDER
     Dosage: 2000 MG, DAILY (2 TABLETS WITH A MEAL DAILY)
     Route: 048
     Dates: start: 20100422
  17. TUMS [Suspect]
     Active Substance: CALCIUM CARBONATE
     Indication: HYPOTHALAMO-PITUITARY DISORDER

REACTIONS (2)
  - Nausea [Unknown]
  - Abdominal discomfort [Unknown]
